FAERS Safety Report 7766229-X (Version None)
Quarter: 2011Q3

REPORT INFORMATION
  Report Type: 
  Country: None (occurrence: None)
  Receive Date: 20110921
  Receipt Date: 20110914
  Transmission Date: 20111222
  Serious: Yes (Hospitalization)
  Sender: FDA-Public Use
  Company Number: FR-BAYER-2011-086700

PATIENT
  Age: 67 Year
  Sex: Male

DRUGS (11)
  1. ROCEPHIN [Suspect]
     Dosage: 1 G, QD
     Route: 030
     Dates: start: 20110621, end: 20110711
  2. UROMEC [Concomitant]
  3. AVODART [Concomitant]
  4. CRESTOR [Concomitant]
  5. GLUCOPHAGE [Concomitant]
  6. ACETAMINOPHEN [Concomitant]
  7. DIAMICRON [Concomitant]
  8. PLAVIX [Concomitant]
  9. PERMIXON [Concomitant]
  10. CIPROFLOXACIN [Suspect]
     Dosage: 500 MG, UNK
     Route: 048
     Dates: start: 20110621, end: 20110711
  11. LASIX [Concomitant]

REACTIONS (4)
  - FEBRILE NEUTROPENIA [None]
  - VOMITING [None]
  - CONSTIPATION [None]
  - DECREASED APPETITE [None]
